FAERS Safety Report 10157377 (Version 1)
Quarter: 2014Q2

REPORT INFORMATION
  Report Type: Spontaneous
  Country: US (occurrence: US)
  Receive Date: 20140507
  Receipt Date: 20140507
  Transmission Date: 20141212
  Serious: No
  Sender: FDA-Public Use
  Company Number: US-SHIRE-US201401951

PATIENT
  Sex: Female

DRUGS (1)
  1. VYVANSE [Suspect]
     Indication: PRODUCT USED FOR UNKNOWN INDICATION
     Dosage: 140 MG (TWO 70 MG), 1X/DAY:QD (EVERY MORNING)
     Route: 048
     Dates: start: 201308

REACTIONS (2)
  - Amphetamines negative [Unknown]
  - Prescribed overdose [Unknown]
